FAERS Safety Report 8955150 (Version 1)
Quarter: 2012Q4

REPORT INFORMATION
  Report Type: 
  Country: FR (occurrence: FR)
  Receive Date: 20121207
  Receipt Date: 20121207
  Transmission Date: 20130627
  Serious: Yes (Other)
  Sender: FDA-Public Use
  Company Number: FR-ABBOTT-12P-056-1017151-00

PATIENT
  Age: 25 Year
  Sex: Female

DRUGS (4)
  1. MICROPAKINE [Suspect]
     Indication: EPILEPSY
     Route: 048
  2. URBANYL [Suspect]
     Indication: EPILEPSY
     Route: 048
  3. STEDIRIL [Suspect]
     Indication: ORAL CONTRACEPTION
     Dosage: 1 dosage form daily
     Route: 048
  4. LAMOTRIGINE [Suspect]
     Indication: EPILEPSY
     Dosage: 100mg daily
     Route: 048

REACTIONS (1)
  - Pulmonary embolism [Unknown]
